FAERS Safety Report 5146064-1 (Version None)
Quarter: 2006Q4

REPORT INFORMATION
  Report Type: 
  Country: None (occurrence: None)
  Receive Date: 20061108
  Receipt Date: 20061107
  Transmission Date: 20070319
  Serious: Yes (Other)
  Sender: FDA-Public Use
  Company Number: DE-GLAXOSMITHKLINE-D0051389A

PATIENT
  Sex: Male

DRUGS (1)
  1. ZINACEF [Suspect]
     Route: 065
     Dates: start: 20060101

REACTIONS (1)
  - ARTERIOSPASM CORONARY [None]
